FAERS Safety Report 9684279 (Version 3)
Quarter: 2014Q1

REPORT INFORMATION
  Report Type: Report from Study
  Country: US (occurrence: US)
  Receive Date: 20131112
  Receipt Date: 20140206
  Transmission Date: 20141002
  Serious: Yes (Other)
  Sender: FDA-Public Use
  Company Number: US-CELGENEUS-163-21880-13110852

PATIENT
  Age: 64 Year
  Sex: Male

DRUGS (27)
  1. REVLIMID [Suspect]
     Indication: PLASMA CELL MYELOMA
     Dosage: 15 MILLIGRAM
     Route: 048
     Dates: start: 20120814, end: 20130809
  2. ACY-1215 [Suspect]
     Indication: PLASMA CELL MYELOMA
     Dosage: 40 MILLIGRAM
     Route: 048
     Dates: start: 20120814, end: 20130809
  3. DEXAMETHASONE [Suspect]
     Indication: PLASMA CELL MYELOMA
     Dosage: 40 MILLIGRAM
     Route: 048
     Dates: start: 20120814, end: 20130809
  4. MAGIC MOUTHWASH [Concomitant]
     Indication: MUCOSAL INFLAMMATION
     Dosage: 3.75 MILLILITER
     Route: 048
     Dates: start: 20130103
  5. TIMOLOL [Concomitant]
     Indication: GLAUCOMA
     Dosage: 1 DROPS
     Route: 047
     Dates: start: 20130206
  6. MUCINEX [Concomitant]
     Indication: NASAL CONGESTION
     Dosage: 2 TABLET
     Route: 048
     Dates: start: 20130207, end: 20130209
  7. MUCINEX [Concomitant]
     Indication: COUGH
  8. ZOLOFT [Concomitant]
     Indication: ANXIETY
     Dosage: 50 MILLIGRAM
     Route: 048
     Dates: start: 20121011, end: 20130226
  9. ZOLOFT [Concomitant]
     Dosage: 100 MILLIGRAM
     Route: 048
     Dates: start: 20130226
  10. VITAMIN D [Concomitant]
     Indication: VITAMIN D DECREASED
     Dosage: 2000 IU (INTERNATIONAL UNIT)
     Route: 048
     Dates: start: 20130314
  11. KETOROLAC [Concomitant]
     Indication: CATARACT OPERATION
     Dosage: 1 DROPS
     Route: 047
  12. PREDNISOLONE [Concomitant]
     Indication: CATARACT OPERATION
     Dosage: 1 DROPS
     Route: 047
  13. LEVAQUIN [Concomitant]
     Indication: PROPHYLAXIS
     Dosage: 750 MILLIGRAM
     Route: 048
     Dates: start: 20130716, end: 20130723
  14. DILTIAZEM HCL [Concomitant]
     Indication: HYPERTENSION
     Dosage: 120 MILLIGRAM
     Route: 048
     Dates: start: 200004
  15. HCTZ [Concomitant]
     Indication: HYPERTENSION
     Dosage: 25 MILLIGRAM
     Route: 048
     Dates: start: 200004
  16. OTC VEG LAXATIVE [Concomitant]
     Indication: CONSTIPATION
     Route: 048
     Dates: start: 20120819
  17. MAGNESIUM, ZINC, CALCIUM [Concomitant]
     Indication: SUPPLEMENTATION THERAPY
     Dosage: 1 TABLET
     Route: 048
     Dates: start: 20120924
  18. ASPIRINE [Concomitant]
     Indication: THROMBOSIS PROPHYLAXIS
     Dosage: 2 TABLET
     Route: 048
     Dates: start: 20120822
  19. K-DUR [Concomitant]
     Indication: HYPOKALAEMIA
     Dosage: 20 MILLIEQUIVALENTS
     Route: 048
     Dates: start: 20121031, end: 20130103
  20. K-DUR [Concomitant]
     Dosage: 40 MILLIEQUIVALENTS
     Route: 048
     Dates: start: 20130104
  21. ACYCLOVIR [Concomitant]
     Indication: MUCOSAL INFLAMMATION
     Dosage: 800 MILLIGRAM
     Route: 048
     Dates: start: 20130101
  22. PRILOSEC [Concomitant]
     Indication: GASTROOESOPHAGEAL REFLUX DISEASE
     Dosage: 25 MILLIGRAM
     Route: 048
     Dates: start: 20120413, end: 20120801
  23. ATIVAN [Concomitant]
     Indication: PREMEDICATION
     Dosage: 1 MILLIGRAM
     Route: 048
     Dates: start: 20120808, end: 20120808
  24. MORPHINE [Concomitant]
     Indication: PREMEDICATION
     Dosage: 2 MILLIGRAM
     Route: 048
     Dates: start: 20120808, end: 20120808
  25. KLOR-CON [Concomitant]
     Indication: MUSCLE SPASMS
     Route: 048
     Dates: start: 20120904, end: 20121031
  26. Z-PAK [Concomitant]
     Indication: BRONCHITIS
     Dosage: 250 MILLIGRAM
     Route: 048
     Dates: start: 20121112, end: 20121116
  27. VENTOLIN HFA [Concomitant]
     Indication: BRONCHITIS
     Route: 065
     Dates: start: 20121112, end: 20121116

REACTIONS (1)
  - Malignant neoplasm of unknown primary site [Unknown]
